FAERS Safety Report 26176495 (Version 1)
Quarter: 2025Q4

REPORT INFORMATION
  Report Type: Spontaneous
  Country: CN (occurrence: CN)
  Receive Date: 20251218
  Receipt Date: 20251218
  Transmission Date: 20260118
  Serious: Yes (Hospitalization)
  Sender: EISAI
  Company Number: CN-Eisai-EC-2025-201906

PATIENT
  Age: 68 Year
  Sex: Male

DRUGS (5)
  1. DONEPEZIL [Suspect]
     Active Substance: DONEPEZIL
     Indication: Dementia Alzheimer^s type
     Route: 048
     Dates: start: 20251119, end: 20251123
  2. NICERGOLINE [Concomitant]
     Active Substance: NICERGOLINE
     Indication: Cerebral arteriosclerosis
     Route: 048
     Dates: start: 20251119, end: 20251119
  3. MEMANTINE [Concomitant]
     Active Substance: MEMANTINE
     Indication: Dementia Alzheimer^s type
     Route: 048
     Dates: start: 20251119, end: 20251119
  4. IDEBENONE [Concomitant]
     Active Substance: IDEBENONE
     Indication: Cerebral arteriosclerosis
     Route: 048
     Dates: start: 20251119, end: 20251119
  5. ATORVASTATIN CALCIUM [Concomitant]
     Active Substance: ATORVASTATIN CALCIUM
     Indication: Cerebral arteriosclerosis
     Route: 048
     Dates: start: 20251119, end: 20251119

REACTIONS (1)
  - Dizziness [Recovering/Resolving]

NARRATIVE: CASE EVENT DATE: 20251121
